FAERS Safety Report 5820964-9 (Version None)
Quarter: 2008Q3

REPORT INFORMATION
  Report Type: 
  Country: None (occurrence: None)
  Receive Date: 20080724
  Receipt Date: 20080710
  Transmission Date: 20090109
  Serious: Yes (Hospitalization)
  Sender: FDA-Public Use
  Company Number: US-BAYER-200812782BCC

PATIENT
  Age: 57 Year
  Sex: Male

DRUGS (4)
  1. ASPIRIN [Suspect]
     Indication: CEREBROVASCULAR ACCIDENT PROPHYLAXIS
     Route: 048
     Dates: start: 20030101, end: 20030101
  2. ALEVE [Suspect]
     Indication: ARTHRITIS
     Dates: end: 20030101
  3. PLAVIX [Suspect]
     Indication: CEREBROVASCULAR ACCIDENT PROPHYLAXIS
     Route: 048
     Dates: start: 20030101, end: 20030101
  4. ZOCOR [Concomitant]
     Indication: BLOOD CHOLESTEROL INCREASED
     Route: 048

REACTIONS (2)
  - HAEMORRHAGE [None]
  - ULCER HAEMORRHAGE [None]
